FAERS Safety Report 10483504 (Version 5)
Quarter: 2015Q3

REPORT INFORMATION
  Report Type: Spontaneous
  Country: GB (occurrence: GB)
  Receive Date: 20140930
  Receipt Date: 20150905
  Transmission Date: 20151125
  Serious: Yes (Hospitalization)
  Sender: FDA-Public Use
  Company Number: GB-AMGEN-GBRSP2014073408

PATIENT
  Age: 64 Year
  Sex: Male
  Weight: 86 kg

DRUGS (3)
  1. ARANESP [Suspect]
     Active Substance: DARBEPOETIN ALFA
     Indication: NEPHROGENIC ANAEMIA
     Dosage: 20 MUG/0.5ML, UNK
     Route: 065
     Dates: start: 2002
  2. PREDNISOLONE. [Suspect]
     Active Substance: PREDNISOLONE
     Indication: PRODUCT USED FOR UNKNOWN INDICATION
     Dosage: 5 MG, UNK
     Route: 048
  3. MYCOPHENOLATE MOFETIL ACCORD [Suspect]
     Active Substance: MYCOPHENOLATE MOFETIL
     Indication: PRODUCT USED FOR UNKNOWN INDICATION
     Dosage: 500 MG, UNK
     Route: 048

REACTIONS (2)
  - Cerebellar infarction [Recovered/Resolved]
  - Cerebrovascular accident [Unknown]
